FAERS Safety Report 12775930 (Version 2)
Quarter: 2024Q3

REPORT INFORMATION
  Report Type: Spontaneous
  Country: US (occurrence: US)
  Receive Date: 20160923
  Receipt Date: 20240816
  Transmission Date: 20241017
  Serious: Yes (Hospitalization, Other)
  Sender: SANOFI AVENTIS
  Company Number: US-SA-2016SA173244

PATIENT
  Age: 78 Year
  Sex: Male

DRUGS (3)
  1. DOCETAXEL [Suspect]
     Active Substance: DOCETAXEL\DOCETAXEL ANHYDROUS
     Indication: Adenocarcinoma pancreas
     Dosage: UNK, 1 ROUND OF ADJUVANT CHEMOTHERAPY
  2. GEMCITABINE [Suspect]
     Active Substance: GEMCITABINE
     Indication: Adenocarcinoma pancreas
     Dosage: UNK, 1 ROUND OF ADJUVANT CHEMOTHERAPY
  3. CAPECITABINE [Suspect]
     Active Substance: CAPECITABINE
     Indication: Adenocarcinoma pancreas
     Dosage: UNK, 1 ROUND OF ADJUVANT CHEMOTHERAPY

REACTIONS (9)
  - Herpes zoster cutaneous disseminated [Recovered/Resolved]
  - Folliculitis [Recovered/Resolved]
  - Pyrexia [Recovered/Resolved]
  - Rash [Recovered/Resolved]
  - Pruritus [Recovered/Resolved]
  - Purpura [Recovered/Resolved]
  - Papule [Recovered/Resolved]
  - Pancreatitis viral [Unknown]
  - Back pain [Unknown]
